FAERS Safety Report 6615413-7 (Version None)
Quarter: 2010Q1

REPORT INFORMATION
  Report Type: 
  Country: None (occurrence: None)
  Receive Date: 20100305
  Receipt Date: 20091111
  Transmission Date: 20100710
  Serious: No
  Sender: FDA-Public Use
  Company Number: A0817068A

PATIENT
  Sex: Female

DRUGS (9)
  1. REQUIP [Suspect]
     Dosage: 1MG AT NIGHT
     Route: 048
     Dates: start: 20061006
  2. ROPINIROLE HYDROCHLORIDE [Suspect]
     Route: 048
     Dates: start: 20080101
  3. FLEXERIL [Concomitant]
  4. XANAX [Concomitant]
  5. CRESTOR [Concomitant]
  6. EFFEXOR [Concomitant]
  7. VICODIN [Concomitant]
  8. LEXAPRO [Concomitant]
     Dates: start: 20061006
  9. CYMBALTA [Concomitant]

REACTIONS (1)
  - ADVERSE EVENT [None]
